FAERS Safety Report 7906174-X (Version None)
Quarter: 2011Q4

REPORT INFORMATION
  Report Type: 
  Country: None (occurrence: None)
  Receive Date: 20111109
  Receipt Date: 20111109
  Transmission Date: 20120403
  Serious: Yes (Congenital Anomaly)
  Sender: FDA-Public Use
  Company Number: None

PATIENT
  Sex: Female
  Weight: 58.514 kg

DRUGS (4)
  1. SORIATANE 20 MG 10 MG [Suspect]
     Indication: PSORIASIS
     Dosage: 25 MG 1 DAILY ORAL 10 MG 1 DAILY ORAL
     Route: 048
     Dates: start: 20111101
  2. SORIATANE 20 MG 10 MG [Suspect]
     Indication: ECZEMA
     Dosage: 25 MG 1 DAILY ORAL 10 MG 1 DAILY ORAL
     Route: 048
     Dates: start: 20111101
  3. SORIATANE 20 MG 10 MG [Suspect]
     Indication: PSORIASIS
     Dosage: 25 MG 1 DAILY ORAL 10 MG 1 DAILY ORAL
     Route: 048
     Dates: start: 20110401
  4. SORIATANE 20 MG 10 MG [Suspect]
     Indication: ECZEMA
     Dosage: 25 MG 1 DAILY ORAL 10 MG 1 DAILY ORAL
     Route: 048
     Dates: start: 20110401

REACTIONS (12)
  - MYALGIA [None]
  - OEDEMA PERIPHERAL [None]
  - ALOPECIA [None]
  - JOINT SWELLING [None]
  - SKIN EXFOLIATION [None]
  - SKIN LESION [None]
  - SKIN HAEMORRHAGE [None]
  - CONTUSION [None]
  - PAIN [None]
  - BURNING SENSATION [None]
  - AMNESIA [None]
  - INFECTION [None]
